FAERS Safety Report 19880152 (Version 1)
Quarter: 2021Q3

REPORT INFORMATION
  Report Type: Report from Study
  Country: EG (occurrence: EG)
  Receive Date: 20210924
  Receipt Date: 20210924
  Transmission Date: 20211014
  Serious: Yes (Other)
  Sender: FDA-Public Use
  Company Number: NVSC2021EG211140

PATIENT
  Age: 68 Year
  Sex: Female

DRUGS (2)
  1. ENTRESTO [Suspect]
     Active Substance: SACUBITRIL\VALSARTAN
     Dosage: 0.5 DF, BID (200 MG (97/103) HALF TABLET TWICE DAILY
     Route: 048
     Dates: start: 202105
  2. ENTRESTO [Suspect]
     Active Substance: SACUBITRIL\VALSARTAN
     Indication: CARDIAC FAILURE
     Dosage: 200 MG, UNKNOWN
     Route: 048
     Dates: start: 20201003

REACTIONS (9)
  - Peripheral swelling [Recovering/Resolving]
  - Choking [Recovering/Resolving]
  - Poor peripheral circulation [Recovering/Resolving]
  - Cough [Recovering/Resolving]
  - Cyanosis [Recovering/Resolving]
  - Peripheral artery occlusion [Recovering/Resolving]
  - Dysstasia [Recovering/Resolving]
  - Wrong technique in product usage process [Unknown]
  - Pain in extremity [Recovering/Resolving]

NARRATIVE: CASE EVENT DATE: 202105
